FAERS Safety Report 6640813-9 (Version None)
Quarter: 2010Q1

REPORT INFORMATION
  Report Type: 
  Country: None (occurrence: None)
  Receive Date: 20100318
  Receipt Date: 20100308
  Transmission Date: 20100710
  Serious: Yes (Other)
  Sender: FDA-Public Use
  Company Number: FR-B.I. PHARMACEUTICALS,INC./RIDGEFIELD-2010-FF-00225FF

PATIENT
  Sex: Female

DRUGS (3)
  1. SIFROL [Suspect]
     Indication: RESTLESS LEGS SYNDROME
     Dosage: 0.72 MG
     Route: 048
     Dates: start: 20060901, end: 20091101
  2. CLONAZEPAM [Concomitant]
  3. ALDACTONE [Concomitant]

REACTIONS (4)
  - AGGRESSION [None]
  - BULIMIA NERVOSA [None]
  - COMPULSIVE SHOPPING [None]
  - PATHOLOGICAL GAMBLING [None]
